FAERS Safety Report 11044886 (Version 1)
Quarter: 2015Q2

REPORT INFORMATION
  Report Type: Spontaneous
  Country: US (occurrence: US)
  Receive Date: 20150417
  Receipt Date: 20150417
  Transmission Date: 20150821
  Serious: No
  Sender: FDA-Public Use
  Company Number: US-ASTRAZENECA-2015SE35810

PATIENT
  Age: 56 Year
  Sex: Female

DRUGS (27)
  1. ARIMIDEX [Suspect]
     Active Substance: ANASTROZOLE
     Route: 048
     Dates: start: 200612, end: 201002
  2. KEFLEX [Concomitant]
     Active Substance: CEPHALEXIN
     Dates: start: 20150217
  3. AMOXICILLIN. [Concomitant]
     Active Substance: AMOXICILLIN
  4. IBUPROFEN. [Concomitant]
     Active Substance: IBUPROFEN
  5. FASLODEX [Suspect]
     Active Substance: FULVESTRANT
     Route: 030
  6. IBRANCE [Suspect]
     Active Substance: PALBOCICLIB
     Indication: BREAST CANCER METASTATIC
     Route: 065
  7. LETROZOLE. [Suspect]
     Active Substance: LETROZOLE
     Route: 065
     Dates: start: 20150305
  8. ZOFRAN [Concomitant]
     Active Substance: ONDANSETRON HYDROCHLORIDE
     Dates: start: 20150107
  9. ABILIFY [Concomitant]
     Active Substance: ARIPIPRAZOLE
     Route: 048
  10. LORAZEPAM. [Concomitant]
     Active Substance: LORAZEPAM
  11. ZOLPIDEM TARTRATE. [Concomitant]
     Active Substance: ZOLPIDEM TARTRATE
     Route: 048
  12. NEOADJUVANT ACT [Suspect]
     Active Substance: UNSPECIFIED INGREDIENT
     Route: 065
  13. EXEMESTANE. [Suspect]
     Active Substance: EXEMESTANE
     Route: 065
  14. AUGMENTIN [Concomitant]
     Active Substance: AMOXICILLIN\CLAVULANATE POTASSIUM
     Dosage: 500-125 MG
     Route: 048
     Dates: end: 20140926
  15. NEURONTIN [Concomitant]
     Active Substance: GABAPENTIN
     Route: 048
     Dates: end: 20140411
  16. EVEROLIMUS [Suspect]
     Active Substance: EVEROLIMUS
     Route: 065
     Dates: start: 201302, end: 201309
  17. XELODA [Suspect]
     Active Substance: CAPECITABINE
     Route: 065
  18. XGAVA [Concomitant]
     Dates: start: 20140328
  19. ZOLOFT [Concomitant]
     Active Substance: SERTRALINE HYDROCHLORIDE
     Route: 048
  20. LETROZOLE. [Suspect]
     Active Substance: LETROZOLE
     Route: 065
  21. GRANISETRON HCL [Concomitant]
     Dates: start: 20150306, end: 20150320
  22. PACLITAXEL. [Concomitant]
     Active Substance: PACLITAXEL
     Dates: start: 20150306, end: 20150320
  23. PROMETHAZINE HCL [Concomitant]
     Active Substance: PROMETHAZINE HYDROCHLORIDE
     Dates: start: 20150107
  24. ZOLPIDEM TARTRATE. [Concomitant]
     Active Substance: ZOLPIDEM TARTRATE
     Route: 048
     Dates: start: 20140717
  25. GABAPENTIN. [Concomitant]
     Active Substance: GABAPENTIN
     Dates: start: 20140328
  26. HEPARIN [Concomitant]
     Active Substance: HEPARIN SODIUM
     Dates: start: 20140328
  27. OXYCODONE HCL [Concomitant]
     Active Substance: OXYCODONE HYDROCHLORIDE
     Dates: start: 20140328

REACTIONS (6)
  - Depression [Unknown]
  - Drug hypersensitivity [Unknown]
  - Musculoskeletal chest pain [Unknown]
  - Disease progression [Not Recovered/Not Resolved]
  - Anaemia vitamin B12 deficiency [Not Recovered/Not Resolved]
  - Toxicity to various agents [Unknown]

NARRATIVE: CASE EVENT DATE: 20140221
